FAERS Safety Report 8382321-3 (Version None)
Quarter: 2012Q2

REPORT INFORMATION
  Report Type: 
  Country: None (occurrence: None)
  Receive Date: 20120524
  Receipt Date: 20120519
  Transmission Date: 20120825
  Serious: Yes (Hospitalization)
  Sender: FDA-Public Use
  Company Number: US-BAYER-201033184NA

PATIENT
  Age: 40 Year
  Sex: Female
  Weight: 117.91 kg

DRUGS (7)
  1. ACETAMINOPHEN [Concomitant]
     Indication: HEADACHE
     Dosage: UNK UNK, PRN
     Dates: start: 20100501
  2. ALBUTEROL [Concomitant]
     Indication: ASTHMA
     Dosage: UNK
     Dates: start: 19930101
  3. SINGULAIR [Concomitant]
     Dosage: 10 MG, QD
     Route: 048
  4. NASONEX [Concomitant]
     Dosage: UNK UNK, QD
     Route: 045
  5. YAZ [Suspect]
     Indication: CONTRACEPTION
     Dosage: UNK UNK, UNK
     Route: 048
     Dates: start: 20070101, end: 20090101
  6. ZYRTEC [Concomitant]
     Dosage: 10 MG, HS
     Route: 048
  7. YAZ [Suspect]
     Indication: MENSTRUATION IRREGULAR

REACTIONS (1)
  - PORTAL VEIN THROMBOSIS [None]
